FAERS Safety Report 10601950 (Version 1)
Quarter: 2014Q4

REPORT INFORMATION
  Report Type: Spontaneous
  Country: US (occurrence: US)
  Receive Date: 20141124
  Receipt Date: 20141124
  Transmission Date: 20150529
  Serious: No
  Sender: FDA-Public Use
  Company Number: US-PFIZER INC-2014318230

PATIENT
  Age: 60 Year
  Sex: Female

DRUGS (13)
  1. BENZONATATE. [Concomitant]
     Active Substance: BENZONATATE
     Indication: COUGH
     Dosage: 100 MG, AS NEEDED (100 MG CAPSULE 1 CAPSULE AS NEEDED 6-8 HOURS PRN)
  2. RANITIDINE HYDROCHLORIDE. [Concomitant]
     Active Substance: RANITIDINE HYDROCHLORIDE
     Dosage: 150 MG, 2X/DAY (150 MG TABLET 1 TABLET TWICE A DAY PRN)
  3. ALBUTEROL SULFATE. [Concomitant]
     Active Substance: ALBUTEROL SULFATE
     Dosage: UNK, AS NEEDED (2 PUFFS AS NEEDED EVERY 4 HRS PRN)
  4. GABAPENTIN. [Concomitant]
     Active Substance: GABAPENTIN
     Indication: FIBROMYALGIA
     Dosage: 300 MG, 2X/DAY
     Route: 048
  5. HYDROCHLOROTHIAZIDE. [Concomitant]
     Active Substance: HYDROCHLOROTHIAZIDE
     Dosage: 12.5 MG, DAILY (ONE CAPSULE BY MOUTH EVERY DAY FOR 90 DAYS)
     Route: 048
  6. TRAMADOL HYDROCHLORIDE. [Concomitant]
     Active Substance: TRAMADOL HYDROCHLORIDE
     Indication: PAIN
     Dosage: 50 MG, AS NEEDED (50 MG TABLET 1 TABLET AS NEEDED EVERY 8 HOURS PRN)
     Route: 048
  7. TRAMADOL HYDROCHLORIDE. [Concomitant]
     Active Substance: TRAMADOL HYDROCHLORIDE
     Indication: FIBROMYALGIA
  8. NEXIUM XR [Concomitant]
     Dosage: 40 MG, 1X/DAY (1 CAPSULE ONCE A DAY)
  9. NIFEDIPINE. [Concomitant]
     Active Substance: NIFEDIPINE
     Indication: PAIN IN EXTREMITY
     Dosage: 30 MG, 1X/DAY (1 TABLET ONCE A DAY)
  10. TUSSIN DM [Concomitant]
     Active Substance: DEXTROMETHORPHAN HYDROBROMIDE\GUAIFENESIN
     Dosage: UNK (GUAIFENESIN 600MG AND DEXTROMETHORPHAN 30MG)
  11. WELLBUTRIN XL [Concomitant]
     Active Substance: BUPROPION HYDROCHLORIDE
     Dosage: 300 MG, 1X/DAY (24 HOUR 1/2 TABLET IN THE MORNING ONCE A DAY)
  12. MUCINEX DM [Concomitant]
     Active Substance: DEXTROMETHORPHAN HYDROBROMIDE\GUAIFENESIN
  13. LYRICA [Suspect]
     Active Substance: PREGABALIN
     Dosage: 75 MG, 2X/DAY (1 CAPSULE IN THE AM 2 CAPSULES IN PM BID)

REACTIONS (2)
  - Condition aggravated [Unknown]
  - Arthralgia [Unknown]
